FAERS Safety Report 15899032 (Version 1)
Quarter: 2019Q1

REPORT INFORMATION
  Report Type: Report from Study
  Country: US (occurrence: US)
  Receive Date: 20190201
  Receipt Date: 20190201
  Transmission Date: 20190417
  Serious: Yes (Hospitalization, Other)
  Sender: FDA-Public Use
  Company Number: US-GLAXOSMITHKLINE-US2019GSK015316

PATIENT
  Sex: Female

DRUGS (5)
  1. ZEJULA [Suspect]
     Active Substance: NIRAPARIB
     Indication: OVARIAN CANCER
     Dosage: 300 MG, QD IN MORNING
     Route: 048
     Dates: start: 20180711
  2. LISINOPRIL. [Concomitant]
     Active Substance: LISINOPRIL
  3. NEURONTIN [Concomitant]
     Active Substance: GABAPENTIN
  4. CLONIDINE. [Concomitant]
     Active Substance: CLONIDINE
  5. VALACICLOVIR HYDROCHLORIDE [Suspect]
     Active Substance: VALACYCLOVIR HYDROCHLORIDE
     Indication: HERPES ZOSTER
     Dosage: UNK

REACTIONS (14)
  - Red blood cell count decreased [Unknown]
  - Cardiac failure congestive [Unknown]
  - Confusional state [Unknown]
  - Lethargy [Unknown]
  - Scab [Recovering/Resolving]
  - Haemoglobin decreased [Unknown]
  - Vomiting [Recovered/Resolved]
  - Pulmonary oedema [Recovered/Resolved]
  - Dehydration [Unknown]
  - Renal function test abnormal [Unknown]
  - Constipation [Recovering/Resolving]
  - Nausea [Recovering/Resolving]
  - Dyspnoea [Unknown]
  - Transfusion [Unknown]
